FAERS Safety Report 10373909 (Version 1)
Quarter: 2014Q3

REPORT INFORMATION
  Report Type: Report from Study
  Country: MX (occurrence: MX)
  Receive Date: 20140809
  Receipt Date: 20140809
  Transmission Date: 20150326
  Serious: Yes (Other)
  Sender: FDA-Public Use
  Company Number: PHHY2014MX098041

PATIENT
  Age: 32 Year
  Sex: Female

DRUGS (3)
  1. LEPTOPSIQUE [Concomitant]
     Dosage: 0.5 UKN, DAILY
  2. TRILEPTAL [Suspect]
     Active Substance: OXCARBAZEPINE
     Indication: DEPRESSION
     Dosage: 1 DF, DAILY
     Route: 048
     Dates: start: 201201, end: 201401
  3. TRILEPTAL [Suspect]
     Active Substance: OXCARBAZEPINE
     Indication: OFF LABEL USE
     Dosage: 0.5 DF, DAILY
     Route: 048
     Dates: start: 201401

REACTIONS (1)
  - Bipolar disorder [Not Recovered/Not Resolved]
